FAERS Safety Report 5596856-X (Version None)
Quarter: 2008Q1

REPORT INFORMATION
  Report Type: 
  Country: None (occurrence: None)
  Receive Date: 20080119
  Receipt Date: 20080109
  Transmission Date: 20080703
  Serious: Yes (Hospitalization)
  Sender: FDA-Public Use
  Company Number: FR-PFIZER INC-2008004036

PATIENT
  Sex: Male

DRUGS (1)
  1. DOXAZOSIN [Suspect]

REACTIONS (1)
  - URINARY RETENTION [None]
